FAERS Safety Report 17133710 (Version 2)
Quarter: 2019Q4

REPORT INFORMATION
  Report Type: Spontaneous
  Country: US (occurrence: US)
  Receive Date: 20191210
  Receipt Date: 20191221
  Transmission Date: 20200122
  Serious: Yes (Death, Life-Threatening, Other)
  Sender: FDA-Public Use
  Company Number: US-UNITED THERAPEUTICS-UNT-2019-020379

PATIENT
  Sex: Male
  Weight: 8.16 kg

DRUGS (3)
  1. SILDENAFIL CITRATE. [Concomitant]
     Active Substance: SILDENAFIL CITRATE
     Indication: PRODUCT USED FOR UNKNOWN INDICATION
     Dosage: UNK
     Route: 065
  2. TRACLEER [Concomitant]
     Active Substance: BOSENTAN
     Indication: PRODUCT USED FOR UNKNOWN INDICATION
     Dosage: UNK
     Route: 065
  3. REMODULIN [Suspect]
     Active Substance: TREPROSTINIL
     Indication: PULMONARY ARTERIAL HYPERTENSION
     Dosage: 0.05125 ?G/KG, CONTINUING
     Route: 058
     Dates: start: 20190802

REACTIONS (7)
  - Pulmonary hypertension [Unknown]
  - Cardiac arrest [Fatal]
  - Respiratory failure [Fatal]
  - Abdominal distension [Unknown]
  - Ventricular tachycardia [Fatal]
  - Sepsis [Fatal]
  - Respiratory distress [Unknown]

NARRATIVE: CASE EVENT DATE: 2019
